FAERS Safety Report 6091680-6 (Version None)
Quarter: 2009Q1

REPORT INFORMATION
  Report Type: 
  Country: None (occurrence: None)
  Receive Date: 20090225
  Receipt Date: 20080523
  Transmission Date: 20090719
  Serious: No
  Sender: FDA-Public Use
  Company Number: A0719388A

PATIENT
  Age: 33 Year
  Sex: Female
  Weight: 52.7 kg

DRUGS (3)
  1. VALTREX [Suspect]
     Indication: GENITAL HERPES
     Dosage: 500MG PER DAY
     Route: 048
     Dates: start: 20061001
  2. CELEXA [Concomitant]
     Indication: DEPRESSION
     Dosage: 10MGD PER DAY
     Route: 048
     Dates: start: 20001201
  3. ZYRTEC [Concomitant]
     Route: 048
     Dates: start: 20080201

REACTIONS (1)
  - DRUG INEFFECTIVE [None]
